FAERS Safety Report 7742454-9 (Version None)
Quarter: 2011Q3

REPORT INFORMATION
  Report Type: 
  Country: None (occurrence: None)
  Receive Date: 20110907
  Receipt Date: 20110907
  Transmission Date: 20111222
  Serious: No
  Sender: FDA-Public Use
  Company Number: None

PATIENT
  Sex: Female

DRUGS (1)
  1. RIBAVIRIN [Suspect]
     Dosage: 600 MG PO
     Route: 048

REACTIONS (2)
  - SKIN ULCER HAEMORRHAGE [None]
  - RASH PRURITIC [None]
